FAERS Safety Report 4378720-7 (Version None)
Quarter: 2004Q2

REPORT INFORMATION
  Report Type: 
  Country: None (occurrence: None)
  Receive Date: 20040616
  Receipt Date: 20040519
  Transmission Date: 20050107
  Serious: Yes (Life-Threatening, Hospitalization)
  Sender: FDA-Public Use
  Company Number: PHFR2004GB02167

PATIENT
  Age: 27 Year
  Sex: Female

DRUGS (3)
  1. CLOZARIL [Suspect]
     Indication: SCHIZOPHRENIA
     Dosage: UNK, UNK
     Route: 048
     Dates: start: 20040416, end: 20040518
  2. VENLAFAXINE [Concomitant]
     Indication: DEPRESSION
     Dosage: 225 MG/DAY
     Route: 048
     Dates: start: 20040201
  3. LACTULOSE [Concomitant]
     Indication: CONSTIPATION
     Dosage: 10 ML, PRN
     Route: 048

REACTIONS (5)
  - ABDOMINAL PAIN [None]
  - LARGE INTESTINE PERFORATION [None]
  - NEUTROPHIL COUNT INCREASED [None]
  - PLATELET COUNT INCREASED [None]
  - WHITE BLOOD CELL COUNT INCREASED [None]
